FAERS Safety Report 9386751 (Version 1)
Quarter: 2013Q3

REPORT INFORMATION
  Report Type: Spontaneous
  Country: US (occurrence: None)
  Receive Date: 20130703
  Receipt Date: 20130703
  Transmission Date: 20140515
  Serious: No
  Sender: FDA-Public Use
  Company Number: None

PATIENT
  Age: 40 Year
  Sex: Female

DRUGS (1)
  1. TECFIDERA [Suspect]
     Route: 048
     Dates: start: 20130601, end: 20130622

REACTIONS (9)
  - Alopecia [None]
  - Weight increased [None]
  - Abdominal distension [None]
  - Depression [None]
  - Gastrointestinal disorder [None]
  - Nausea [None]
  - Rash [None]
  - Malaise [None]
  - Feeling abnormal [None]
